FAERS Safety Report 6138806-3 (Version None)
Quarter: 2009Q1

REPORT INFORMATION
  Report Type: 
  Country: None (occurrence: None)
  Receive Date: 20090327
  Receipt Date: 20090312
  Transmission Date: 20090719
  Serious: Yes (Other)
  Sender: FDA-Public Use
  Company Number: SPV1-2009-00435

PATIENT

DRUGS (1)
  1. XAGRID (ANAGRELIDE HYDROCHLORIDE) CAPSULE [Suspect]
     Dosage: DF

REACTIONS (1)
  - MYOSITIS [None]
